FAERS Safety Report 6093629-9 (Version None)
Quarter: 2009Q1

REPORT INFORMATION
  Report Type: 
  Country: None (occurrence: None)
  Receive Date: 20090226
  Receipt Date: 20090223
  Transmission Date: 20090719
  Serious: Yes (Death)
  Sender: FDA-Public Use
  Company Number: PHHY2009DK06233

PATIENT
  Sex: Female

DRUGS (1)
  1. SANDOSTATIN LAR [Suspect]
     Indication: HYPOGLYCAEMIA
     Dosage: UNK
     Route: 064
     Dates: start: 19990901

REACTIONS (3)
  - DRUG EXPOSURE DURING PREGNANCY [None]
  - NECROTISING COLITIS [None]
  - SURGERY [None]
